FAERS Safety Report 7520321-3 (Version None)
Quarter: 2011Q2

REPORT INFORMATION
  Report Type: 
  Country: None (occurrence: None)
  Receive Date: 20110602
  Receipt Date: 20110525
  Transmission Date: 20111010
  Serious: Yes (Hospitalization)
  Sender: FDA-Public Use
  Company Number: DE-BAXTER-2011BH017483

PATIENT
  Age: 56 Year
  Sex: Male
  Weight: 145 kg

DRUGS (1)
  1. TISSEEL VH KIT [Suspect]
     Dates: start: 20110112

REACTIONS (1)
  - WOUND INFECTION [None]
